FAERS Safety Report 24426308 (Version 2)
Quarter: 2025Q3

REPORT INFORMATION
  Report Type: Spontaneous
  Country: US (occurrence: US)
  Receive Date: 20241011
  Receipt Date: 20250710
  Transmission Date: 20251020
  Serious: No
  Sender: ABBVIE
  Company Number: US-ABBVIE-5952674

PATIENT
  Sex: Female

DRUGS (2)
  1. NAMENDA [Suspect]
     Active Substance: MEMANTINE HYDROCHLORIDE
     Indication: Product used for unknown indication
     Route: 048
  2. TUKYSA [Concomitant]
     Active Substance: TUCATINIB
     Indication: Product used for unknown indication
     Route: 048
     Dates: start: 20240822

REACTIONS (7)
  - Pain in extremity [Unknown]
  - Dizziness [Unknown]
  - Nervous system disorder [Unknown]
  - Unevaluable event [Unknown]
  - Diarrhoea [Unknown]
  - General physical health deterioration [Unknown]
  - Crying [Unknown]
